FAERS Safety Report 4517542-0 (Version None)
Quarter: 2004Q4

REPORT INFORMATION
  Report Type: 
  Country: None (occurrence: None)
  Receive Date: 20041130
  Receipt Date: 20041115
  Transmission Date: 20050328
  Serious: Yes (Hospitalization)
  Sender: FDA-Public Use
  Company Number: US_0411108146

PATIENT
  Age: 73 Year
  Sex: Male

DRUGS (1)
  1. HUMALOG [Suspect]

REACTIONS (4)
  - CARDIAC OPERATION [None]
  - DEVICE FAILURE [None]
  - GALLBLADDER OPERATION [None]
  - PHARMACEUTICAL PRODUCT COMPLAINT [None]
